FAERS Safety Report 9985315 (Version 1)
Quarter: 2014Q1

REPORT INFORMATION
  Report Type: Report from Study
  Country: US (occurrence: US)
  Receive Date: 20140307
  Receipt Date: 20140307
  Transmission Date: 20141002
  Serious: No
  Sender: FDA-Public Use
  Company Number: US-ABBVIE-13P-163-1184968-00

PATIENT
  Age: 35 Year
  Sex: Female

DRUGS (3)
  1. HUMIRA [Suspect]
     Indication: PSORIASIS
     Dates: end: 20131206
  2. FLONASE [Concomitant]
     Indication: HYPERSENSITIVITY
  3. IMITREX [Concomitant]
     Indication: MIGRAINE

REACTIONS (2)
  - Oropharyngeal pain [Recovered/Resolved]
  - Dysphagia [Recovered/Resolved]
